FAERS Safety Report 8616536 (Version 3)
Quarter: 2014Q1

REPORT INFORMATION
  Report Type: Spontaneous
  Country: US (occurrence: US)
  Receive Date: 20120615
  Receipt Date: 20140129
  Transmission Date: 20141002
  Serious: Yes (Hospitalization)
  Sender: FDA-Public Use
  Company Number: US-ASTRAZENECA-2012SE35800

PATIENT
  Age: 710 Month
  Sex: Female
  Weight: 62.6 kg

DRUGS (15)
  1. NEXIUM [Suspect]
     Indication: GASTROOESOPHAGEAL REFLUX DISEASE
     Route: 048
     Dates: start: 2002, end: 2013
  2. NEXIUM [Suspect]
     Indication: GASTROOESOPHAGEAL REFLUX DISEASE
     Route: 048
     Dates: start: 20101129
  3. LASIX [Concomitant]
  4. NITROSTAT [Concomitant]
  5. METOPROLOL [Concomitant]
  6. VITAMIN D [Concomitant]
  7. LISINOPRIL [Concomitant]
  8. CRESTOR [Concomitant]
  9. CRESTOR [Concomitant]
     Route: 048
     Dates: start: 20110131
  10. PLAVIX [Concomitant]
     Indication: PULMONARY VASCULAR DISORDER
     Route: 048
     Dates: start: 20100826
  11. ISOSORBIDE [Concomitant]
  12. ZETIA [Concomitant]
     Indication: CARDIAC DISORDER
     Route: 048
     Dates: start: 20101026
  13. LIPITOR [Concomitant]
     Route: 048
     Dates: start: 20100816
  14. HYDROCHLOROTHIAZIDE [Concomitant]
     Indication: FLUID RETENTION
     Route: 048
     Dates: start: 20101101
  15. FUROSEMIDE [Concomitant]
     Route: 048
     Dates: start: 20120601

REACTIONS (5)
  - Cardiac failure congestive [Unknown]
  - Osteoporosis [Unknown]
  - Multiple fractures [Unknown]
  - Ankle fracture [Unknown]
  - Vitamin D deficiency [Unknown]
